FAERS Safety Report 4908289-7 (Version None)
Quarter: 2006Q1

REPORT INFORMATION
  Report Type: 
  Country: None (occurrence: None)
  Receive Date: 20060210
  Receipt Date: 20060203
  Transmission Date: 20060701
  Serious: Yes (Other)
  Sender: FDA-Public Use
  Company Number: ES-BRISTOL-MYERS SQUIBB COMPANY-13272364

PATIENT
  Age: 42 Year
  Sex: Male
  Weight: 47 kg

DRUGS (7)
  1. DIDANOSINE [Suspect]
     Indication: HIV INFECTION
  2. EFAVIRENZ [Suspect]
     Indication: HIV INFECTION
  3. LAMIVUDINE [Suspect]
     Indication: HIV INFECTION
  4. COTRIM [Concomitant]
     Indication: PROPHYLAXIS
     Dosage: 800 MG/160 MG
  5. RIFAMPICIN [Concomitant]
     Indication: TUBERCULOSIS
  6. ISONIAZID [Concomitant]
     Indication: TUBERCULOSIS
  7. PYRAZINAMIDE [Concomitant]
     Indication: TUBERCULOSIS

REACTIONS (2)
  - HALLUCINATION, VISUAL [None]
  - SLEEP DISORDER [None]
